FAERS Safety Report 19360903 (Version 1)
Quarter: 2021Q2

REPORT INFORMATION
  Report Type: Report from Study
  Country: None (occurrence: US)
  Receive Date: 20210602
  Receipt Date: 20210602
  Transmission Date: 20210717
  Serious: No
  Sender: FDA-Public Use
  Company Number: US-MDD US OPERATIONS-MDD202012-002509

PATIENT
  Age: 76 Year
  Sex: Female

DRUGS (6)
  1. CARBO/LEVO [Concomitant]
     Indication: PARKINSON^S DISEASE
     Dosage: 25/100MG
  2. ASA [Concomitant]
     Active Substance: ASPIRIN
  3. APOKYN [Suspect]
     Active Substance: APOMORPHINE HYDROCHLORIDE
     Indication: PARKINSON^S DISEASE
     Route: 058
     Dates: start: 20201208
  4. APOKYN [Suspect]
     Active Substance: APOMORPHINE HYDROCHLORIDE
     Route: 058
     Dates: start: 20201208
  5. APOKYN [Suspect]
     Active Substance: APOMORPHINE HYDROCHLORIDE
     Route: 058
     Dates: start: 202012
  6. NEUPRO [Suspect]
     Active Substance: ROTIGOTINE
     Indication: PARKINSON^S DISEASE
     Dates: end: 20210306

REACTIONS (6)
  - Nausea [Recovered/Resolved]
  - Rash [Recovering/Resolving]
  - Confusional state [Unknown]
  - Urinary tract infection [Unknown]
  - Yawning [Recovered/Resolved]
  - Skin irritation [Unknown]

NARRATIVE: CASE EVENT DATE: 20201212
